FAERS Safety Report 8504245-0 (Version None)
Quarter: 2012Q3

REPORT INFORMATION
  Report Type: 
  Country: None (occurrence: None)
  Receive Date: 20120711
  Receipt Date: 20120703
  Transmission Date: 20120928
  Serious: Yes (Hospitalization)
  Sender: FDA-Public Use
  Company Number: US-VERTEX PHARMACEUTICALS INC.-AE-2012-004589

PATIENT
  Sex: Female

DRUGS (8)
  1. INCIVEK [Suspect]
     Route: 048
     Dates: start: 20120222
  2. RIBAVIRIN [Concomitant]
     Indication: HEPATITIS C
     Dates: start: 20120203
  3. LEVOTHYROXINE SODIUM [Concomitant]
  4. INCIVEK [Suspect]
     Indication: HEPATITIS C
     Route: 048
     Dates: start: 20120203, end: 20120211
  5. PEGASYS [Concomitant]
     Indication: HEPATITIS C
     Route: 058
     Dates: start: 20120203
  6. PEGASYS [Concomitant]
  7. MICARDIS [Concomitant]
  8. RIBAVIRIN [Concomitant]
     Route: 048

REACTIONS (1)
  - PANCREATITIS [None]
